FAERS Safety Report 8459420 (Version 2)
Quarter: 2012Q4

REPORT INFORMATION
  Report Type: 
  Country: US (occurrence: US)
  Receive Date: 20120314
  Receipt Date: 20120913
  Transmission Date: 20130627
  Serious: No
  Sender: FDA-Public Use
  Company Number: US-ASTRAZENECA-2011SE59750

PATIENT
  Age: 62 Year
  Sex: Female

DRUGS (4)
  1. TOPROL XL [Suspect]
     Route: 048
  2. TOPROL XL [Suspect]
     Route: 048
  3. PRILOSEC [Suspect]
     Route: 048
  4. NEXIUM [Concomitant]

REACTIONS (5)
  - Hypertension [Unknown]
  - Feeling abnormal [Unknown]
  - Malaise [Unknown]
  - Drug dose omission [Unknown]
  - Drug ineffective [Unknown]
